FAERS Safety Report 25388000 (Version 2)
Quarter: 2025Q3

REPORT INFORMATION
  Report Type: Spontaneous
  Country: JP (occurrence: JP)
  Receive Date: 20250603
  Receipt Date: 20250803
  Transmission Date: 20251021
  Serious: Yes (Hospitalization, Other)
  Sender: ALEXION PHARMACEUTICALS
  Company Number: JP-ASTRAZENECA-250052328_013120_P_1

PATIENT
  Age: 49 Year
  Sex: Male
  Weight: 60 kg

DRUGS (7)
  1. DURVALUMAB [Suspect]
     Active Substance: DURVALUMAB
     Indication: Non-small cell lung cancer
     Dosage: 1500 MILLIGRAM, Q4W
     Dates: start: 20241016, end: 20241016
  2. ESOMEPRAZOLE [Concomitant]
     Active Substance: ESOMEPRAZOLE
  3. SULFAMETHOXAZOLE\TRIMETHOPRIM [Concomitant]
     Active Substance: SULFAMETHOXAZOLE\TRIMETHOPRIM
  4. TIQUIZIUM BROMIDE [Concomitant]
     Active Substance: TIQUIZIUM BROMIDE
  5. LOXOPROFEN [Concomitant]
     Active Substance: LOXOPROFEN
  6. REBAMIPIDE [Concomitant]
     Active Substance: REBAMIPIDE
  7. Rinderon [Concomitant]

REACTIONS (4)
  - Immune-mediated neuropathy [Recovered/Resolved]
  - Radiation pneumonitis [Unknown]
  - Pyrexia [Unknown]
  - C-reactive protein increased [Unknown]

NARRATIVE: CASE EVENT DATE: 20241025
